FAERS Safety Report 20197712 (Version 1)
Quarter: 2021Q4

REPORT INFORMATION
  Report Type: Report from Study
  Country: CO (occurrence: CO)
  Receive Date: 20211217
  Receipt Date: 20211217
  Transmission Date: 20220303
  Serious: Yes (Other)
  Sender: FDA-Public Use
  Company Number: CO-AMGEN-COLSL2018167872

PATIENT
  Age: 64 Year
  Sex: Male

DRUGS (6)
  1. VECTIBIX [Suspect]
     Active Substance: PANITUMUMAB
     Indication: Colorectal cancer metastatic
     Dosage: 360 MG, Q2WK
     Route: 042
     Dates: start: 20181102
  2. VECTIBIX [Suspect]
     Active Substance: PANITUMUMAB
     Dosage: 560 MILLIGRAM, Q3WK (EVERY 21 DAYS)
     Route: 042
     Dates: start: 20200914, end: 2020
  3. VECTIBIX [Suspect]
     Active Substance: PANITUMUMAB
     Dosage: 560 MILLIGRAM, Q2WK
     Route: 042
     Dates: start: 2020
  4. VECTIBIX [Suspect]
     Active Substance: PANITUMUMAB
     Dosage: 560 MILLIGRAM, Q3WK (EVERY 21 DAYS)
     Route: 042
     Dates: start: 2020, end: 20211025
  5. VECTIBIX [Suspect]
     Active Substance: PANITUMUMAB
     Dosage: 300 MILLIGRAM, Q2WK
     Route: 042
  6. POLYVINYL ALCOHOL\POVIDONE [Concomitant]
     Active Substance: POLYVINYL ALCOHOL\POVIDONE
     Dosage: UNK, 1 DROP EVERY 12 HOURSIN EACH EYE
     Dates: start: 20200923

REACTIONS (6)
  - Herpes zoster [Recovered/Resolved]
  - Terminal state [Not Recovered/Not Resolved]
  - Pain [Not Recovered/Not Resolved]
  - Xeroderma [Not Recovered/Not Resolved]
  - Rash [Not Recovered/Not Resolved]
  - Off label use [Unknown]

NARRATIVE: CASE EVENT DATE: 20181112
